FAERS Safety Report 13415479 (Version 1)
Quarter: 2017Q2

REPORT INFORMATION
  Report Type: Spontaneous
  Country: ZA (occurrence: ZA)
  Receive Date: 20170406
  Receipt Date: 20170406
  Transmission Date: 20170830
  Serious: Yes (Hospitalization)
  Sender: FDA-Public Use
  Company Number: ZA-NOVOPROD-538196

PATIENT
  Age: 62 Year
  Sex: Female

DRUGS (1)
  1. ESTROFEM [Suspect]
     Active Substance: ESTRADIOL CYPIONATE
     Indication: HORMONE THERAPY
     Dosage: MG
     Route: 048
     Dates: start: 20161021

REACTIONS (1)
  - Nerve compression [Not Recovered/Not Resolved]

NARRATIVE: CASE EVENT DATE: 20170320
